FAERS Safety Report 10130721 (Version 1)
Quarter: 2014Q2

REPORT INFORMATION
  Report Type: Spontaneous
  Country: US (occurrence: US)
  Receive Date: 20140428
  Receipt Date: 20140428
  Transmission Date: 20141212
  Serious: No
  Sender: FDA-Public Use
  Company Number: US-PFIZER INC-2014116664

PATIENT
  Age: 90 Year
  Sex: Male

DRUGS (4)
  1. EFFEXOR [Suspect]
     Indication: DEPRESSION
     Dosage: 37.5 MG, DAILY
     Dates: start: 2014
  2. EFFEXOR [Suspect]
     Indication: ANXIETY
  3. PRISTIQ [Concomitant]
     Indication: DEPRESSION
     Dosage: UNK
     Dates: end: 2014
  4. PRISTIQ [Concomitant]
     Indication: ANXIETY

REACTIONS (3)
  - Dizziness [Not Recovered/Not Resolved]
  - Vision blurred [Not Recovered/Not Resolved]
  - Condition aggravated [Not Recovered/Not Resolved]
